FAERS Safety Report 9035613 (Version 1)
Quarter: 2013Q1

REPORT INFORMATION
  Report Type: Report from Study
  Country: US (occurrence: US)
  Receive Date: 20130129
  Receipt Date: 20130129
  Transmission Date: 20140127
  Serious: No
  Sender: FDA-Public Use
  Company Number: US-ABBOTT-12P-163-0907747-00

PATIENT
  Age: 76 Year
  Sex: Female

DRUGS (8)
  1. HUMIRA 40 MG/0.8 ML PEN [Suspect]
     Indication: COLITIS ULCERATIVE
     Dates: start: 20120216, end: 20120216
  2. HUMIRA 40 MG/0.8 ML PEN [Suspect]
     Dates: start: 20120301
  3. HUMIRA 40 MG/0.8 ML PEN [Suspect]
     Dates: start: 20120301
  4. SYNTHROID [Concomitant]
     Indication: PRODUCT USED FOR UNKNOWN INDICATION
  5. PROZAC [Concomitant]
     Indication: PRODUCT USED FOR UNKNOWN INDICATION
  6. PREDNISONE [Concomitant]
     Indication: PRODUCT USED FOR UNKNOWN INDICATION
     Dosage: WEANING OFF
  7. PREDNISONE [Concomitant]
     Dosage: WEANING OFF
  8. TRAZODONE [Concomitant]
     Indication: PRODUCT USED FOR UNKNOWN INDICATION
     Dosage: 5 MG

REACTIONS (12)
  - Urinary tract infection [Recovering/Resolving]
  - Dysuria [Not Recovered/Not Resolved]
  - Injection site bruising [Recovering/Resolving]
  - Injection site erythema [Not Recovered/Not Resolved]
  - Skin exfoliation [Not Recovered/Not Resolved]
  - Local swelling [Not Recovered/Not Resolved]
  - Erythema [Not Recovered/Not Resolved]
  - Wound infection [Not Recovered/Not Resolved]
  - Injection site pain [Not Recovered/Not Resolved]
  - Abdominal pain [Unknown]
  - Micturition urgency [Unknown]
  - Dysuria [Not Recovered/Not Resolved]
